FAERS Safety Report 5383252-3 (Version None)
Quarter: 2007Q3

REPORT INFORMATION
  Report Type: 
  Country: None (occurrence: None)
  Receive Date: 20070710
  Receipt Date: 20070702
  Transmission Date: 20080115
  Serious: Yes (Hospitalization, Other)
  Sender: FDA-Public Use
  Company Number: US-PFIZER INC-2006146917

PATIENT
  Sex: Female
  Weight: 102.1 kg

DRUGS (21)
  1. CELEBREX [Suspect]
     Indication: RHEUMATOID ARTHRITIS
     Route: 048
  2. VIOXX [Suspect]
     Indication: RHEUMATOID ARTHRITIS
     Route: 048
     Dates: start: 19990601
  3. ACTOS [Concomitant]
     Indication: DIABETES MELLITUS
  4. AMARYL [Concomitant]
     Indication: DIABETES MELLITUS
  5. AMITRIPTYLINE HCL [Concomitant]
     Indication: DEPRESSION
  6. ARTHROTEC [Concomitant]
     Indication: PAIN
  7. COUMADIN [Concomitant]
     Indication: THROMBOSIS
  8. FERROUS SULFATE [Concomitant]
     Indication: HYPOVITAMINOSIS
  9. GLUCOPHAGE [Concomitant]
     Indication: DIABETES MELLITUS
  10. HUMULIN R [Concomitant]
     Indication: DIABETES MELLITUS
  11. IBUPROFEN [Concomitant]
     Indication: PAIN
     Dates: start: 20000616
  12. INSULIN [Concomitant]
     Indication: DIABETES MELLITUS
  13. LIPITOR [Concomitant]
     Indication: BLOOD CHOLESTEROL INCREASED
     Dates: start: 19980628
  14. MEDROXYPROGESTERONE [Concomitant]
     Indication: HORMONE THERAPY
  15. NORVASC [Concomitant]
     Indication: HYPERTENSION
     Dates: start: 20000509
  16. PRAVACHOL [Concomitant]
     Indication: BLOOD CHOLESTEROL INCREASED
     Dates: start: 20000411
  17. PRECOSE [Concomitant]
     Indication: DIABETES MELLITUS
  18. PRILOSEC [Concomitant]
     Indication: DYSPEPSIA
  19. RANITIDINE [Concomitant]
     Indication: DYSPEPSIA
  20. VASOTEC [Concomitant]
     Indication: HYPERTENSION
  21. XENICAL [Concomitant]
     Indication: OBESITY

REACTIONS (1)
  - DEEP VEIN THROMBOSIS [None]
